FAERS Safety Report 22117573 (Version 2)
Quarter: 2023Q2

REPORT INFORMATION
  Report Type: Report from Study
  Country: US (occurrence: US)
  Receive Date: 20230321
  Receipt Date: 20230424
  Transmission Date: 20230722
  Serious: No
  Sender: FDA-Public Use
  Company Number: US-ACADIA PHARMACEUTICALS INC.-ACA-2023-PIM-000834

PATIENT
  Sex: Male

DRUGS (20)
  1. NUPLAZID [Suspect]
     Active Substance: PIMAVANSERIN TARTRATE
     Indication: Parkinson^s disease psychosis
     Dosage: 34 MILLIGRAM, QD
     Route: 048
     Dates: start: 20230123, end: 20230314
  2. SINEMET [Suspect]
     Active Substance: CARBIDOPA\LEVODOPA
  3. CITRACAL [CALCIUM CARBONATE;COLECALCIFEROL;VITAMIN K NOS] [Concomitant]
     Dosage: 650 MG, 12.5MCG AND 40MCG, 1 PILL DAILY
  4. CARBIDOPA\LEVODOPA [Concomitant]
     Active Substance: CARBIDOPA\LEVODOPA
     Dosage: 10-100 MG, TAKE 1 PILL AT 7AM, 2 PILLS AT 12:30PM AND 5PM, AND 1 PILL AT BEDTIME
  5. CARBIDOPA\LEVODOPA [Concomitant]
     Active Substance: CARBIDOPA\LEVODOPA
     Dosage: 50-200 MG, TAKE 1 AND 1/2 TABLETS BY MOUTH AT 5 PM
     Route: 048
  6. UBIQUINOL COQ 10 [Concomitant]
     Dosage: 100 MILLIGRAM, QD ALONG WITH 300 MG
  7. UBIQUINOL COQ 10 [Concomitant]
     Dosage: 300 MILLIGRAM, QD, 1 PILLL ALONG WITH 100MG
  8. DONEPEZIL [Concomitant]
     Active Substance: DONEPEZIL
     Dosage: 5 MILLIGRAM, QD
     Dates: start: 202205
  9. LUTEIN-ZEAXANTHIN [Concomitant]
     Dosage: TAKE (1) 24-5MG TABLET DAILY
  10. LANSOPRAZOLE [Concomitant]
     Active Substance: LANSOPRAZOLE
     Dosage: 15 MILLIGRAM, QD
     Route: 048
  11. VITAMINS NOS [Concomitant]
     Active Substance: VITAMINS
     Dosage: TAKE 1 TABLET(S) EVERY DAY
     Route: 048
  12. OLANZAPINE [Concomitant]
     Active Substance: OLANZAPINE
     Dosage: 5 MILLIGRAM
  13. RYTARY [Concomitant]
     Active Substance: CARBIDOPA\LEVODOPA
     Dosage: 48.75 MG-195 MG, TAKE 2 PILLS AT 7AM, 3 PILLS AT 12:30PM, 2 PILLS AT 5PM AND 3 PILLS AT BEDTIME
  14. HERBALS\TURMERIC [Concomitant]
     Active Substance: HERBALS\TURMERIC
     Dosage: 1500 MILLIGRAM, QD
  15. VITAMIN B12 [Concomitant]
     Active Substance: CYANOCOBALAMIN
     Dosage: 5000 MICROGRAM, QD
     Route: 060
  16. VITAMIN C [Concomitant]
     Active Substance: ASCORBIC ACID
     Dosage: 500 MILLIGRAM, QD
     Route: 048
  17. VITAMIN D3 [Concomitant]
     Active Substance: CHOLECALCIFEROL
     Dosage: 25 MICROGRAM, QD
     Route: 048
  18. VITAMIN E [Concomitant]
     Active Substance: .ALPHA.-TOCOPHEROL
     Dosage: 180 U, 1 PILL DAILY
  19. ZINC [Concomitant]
     Active Substance: ZINC
     Dosage: 50 MILLIGRAM, QD
     Route: 048
  20. KETOCONAZOLE [Concomitant]
     Active Substance: KETOCONAZOLE
     Dosage: 2%
     Route: 061

REACTIONS (10)
  - Tremor [Recovering/Resolving]
  - Musculoskeletal stiffness [Recovered/Resolved]
  - Balance disorder [Recovering/Resolving]
  - Dizziness [Recovering/Resolving]
  - Brain fog [Recovered/Resolved]
  - Injury [Unknown]
  - Confusional state [Recovering/Resolving]
  - Gait disturbance [Recovering/Resolving]
  - Hallucination [Recovering/Resolving]
  - Fall [Recovered/Resolved]

NARRATIVE: CASE EVENT DATE: 20230101
